FAERS Safety Report 4888816-9 (Version None)
Quarter: 2005Q4

REPORT INFORMATION
  Report Type: 
  Country: None (occurrence: None)
  Receive Date: 20051215
  Receipt Date: 20050627
  Transmission Date: 20060501
  Serious: Yes (Hospitalization)
  Sender: FDA-Public Use
  Company Number: 2005087848

PATIENT
  Age: 43 Year
  Sex: Female
  Weight: 92.0802 kg

DRUGS (3)
  1. BEXTRA [Suspect]
     Indication: ARTHRITIS
     Dosage: (1 IN 1 D), ORAL
     Route: 048
     Dates: start: 20030101, end: 20050101
  2. EFFEXOR [Concomitant]
  3. SKELAXIN [Concomitant]

REACTIONS (4)
  - CHEST PAIN [None]
  - CORONARY ARTERY STENOSIS [None]
  - HYPOAESTHESIA [None]
  - PAIN IN EXTREMITY [None]
